FAERS Safety Report 12958019 (Version 1)
Quarter: 2016Q4

REPORT INFORMATION
  Report Type: Spontaneous
  Country: US (occurrence: US)
  Receive Date: 20161120
  Receipt Date: 20161120
  Transmission Date: 20170207
  Serious: Yes (Death, Hospitalization, Other)
  Sender: FDA-Public Use
  Company Number: US-GLENMARK PHARMACEUTICALS INC, USA.-2016GMK025024

PATIENT
  Age: 61 Year
  Sex: Male

DRUGS (3)
  1. FENTANYL. [Suspect]
     Active Substance: FENTANYL
     Indication: ANAESTHESIA PROCEDURE
     Dosage: UNK
     Route: 042
  2. PROPOFOL. [Suspect]
     Active Substance: PROPOFOL
     Indication: ANAESTHESIA PROCEDURE
     Dosage: UNK
     Route: 042
  3. LIDOCAINE. [Suspect]
     Active Substance: LIDOCAINE
     Indication: ANAESTHESIA PROCEDURE
     Dosage: UNK
     Route: 042

REACTIONS (10)
  - Cerebral artery embolism [Fatal]
  - Neck pain [Unknown]
  - Sinus pain [Unknown]
  - Hemiparesis [Unknown]
  - Hypertension [Unknown]
  - Pneumonia [Unknown]
  - Partial seizures [Unknown]
  - Nausea [Unknown]
  - Air embolism [Fatal]
  - Confusional state [Unknown]
